FAERS Safety Report 7251162-2 (Version None)
Quarter: 2011Q1

REPORT INFORMATION
  Report Type: 
  Country: None (occurrence: None)
  Receive Date: 20110119
  Receipt Date: 20110104
  Transmission Date: 20110831
  Serious: Yes (Life-Threatening, Hospitalization, Disabling)
  Sender: FDA-Public Use
  Company Number: AUR-APL-2010-03071

PATIENT
  Age: 69 Year
  Sex: Female

DRUGS (15)
  1. ACETYLSALICYLIC ACID [Concomitant]
  2. PARACETAMOL [Concomitant]
  3. WARFARIN PRN [Concomitant]
  4. SIMVASTATIN [Suspect]
     Dosage: 40MG-ORAL
     Route: 048
     Dates: start: 20061201, end: 20101022
  5. PERINDOPRIL [Concomitant]
  6. SPIRONOLACTONE [Concomitant]
  7. FRUSEMIDE [Concomitant]
  8. AMIODARONE HCL [Suspect]
     Dosage: 200MG-ORAL
     Route: 048
     Dates: start: 20091001, end: 20101022
  9. CITALOPRAM [Concomitant]
  10. CODEINE SULFATE [Concomitant]
  11. BUMETANIDE [Concomitant]
  12. NEBIVOLOL [Concomitant]
  13. TRIMETHOPRIM [Concomitant]
  14. BALSALAZIDE DISODIUM [Concomitant]
  15. FLOXACILLIN SODIUM [Concomitant]

REACTIONS (3)
  - INTERNATIONAL NORMALISED RATIO INCREASED [None]
  - RHABDOMYOLYSIS [None]
  - RENAL IMPAIRMENT [None]
